FAERS Safety Report 5391741-0 (Version None)
Quarter: 2007Q3

REPORT INFORMATION
  Report Type: 
  Country: None (occurrence: None)
  Receive Date: 20070719
  Receipt Date: 20070612
  Transmission Date: 20080115
  Serious: Yes (Hospitalization)
  Sender: FDA-Public Use
  Company Number: US-GENENTECH-230330

PATIENT
  Sex: Male
  Weight: 88.888 kg

DRUGS (1)
  1. RITUXIMAB [Suspect]
     Indication: MULTIPLE SCLEROSIS
     Dosage: 2 G, Q24W
     Route: 042
     Dates: start: 20041117

REACTIONS (1)
  - CHOLECYSTITIS ACUTE [None]
